FAERS Safety Report 8238913-5 (Version None)
Quarter: 2012Q1

REPORT INFORMATION
  Report Type: 
  Country: None (occurrence: None)
  Receive Date: 20120327
  Receipt Date: 20120312
  Transmission Date: 20120608
  Serious: Yes (Death, Hospitalization)
  Sender: FDA-Public Use
  Company Number: US-JUTA GMBH-2012-05002

PATIENT
  Age: 27 Year
  Sex: Female

DRUGS (6)
  1. SERTRALINE HYDROCHLORIDE [Suspect]
     Indication: DEPRESSION
     Dosage: 50 MG, DAILY
     Route: 065
  2. QUETIAPINE FUMARATE [Suspect]
     Indication: DEPRESSION
     Dosage: 25 MG, SINGLE
     Route: 065
  3. HALOPERIDOL [Suspect]
     Indication: AGITATION
  4. RISPERIDONE [Suspect]
     Indication: PSYCHIATRIC SYMPTOM
     Dosage: 0.5 MG, QHS
     Route: 065
  5. LORAZEPAM [Suspect]
     Indication: AGITATION
     Dosage: 2 MG, SINGLE
     Route: 030
  6. LORAZEPAM [Suspect]
     Indication: CATATONIA
     Dosage: 2 MG, SINGLE
     Route: 042

REACTIONS (1)
  - PULMONARY EMBOLISM [None]
